FAERS Safety Report 9553431 (Version 4)
Quarter: 2013Q4

REPORT INFORMATION
  Report Type: Spontaneous
  Country: IT (occurrence: IT)
  Receive Date: 20130925
  Receipt Date: 20131122
  Transmission Date: 20140711
  Serious: Yes (Other)
  Sender: FDA-Public Use
  Company Number: IT-PFIZER INC-2013273274

PATIENT
  Age: 75 Year
  Sex: Male

DRUGS (6)
  1. AMIODARONE HCL [Suspect]
     Dosage: UNK
     Dates: start: 20130101, end: 20130704
  2. BISOPROLOL FUMARATE [Suspect]
     Dosage: UNK
     Dates: start: 20130101, end: 20130704
  3. CUMADIN [Concomitant]
     Dosage: UNK
  4. ROSUVASTATIN CALCIUM [Concomitant]
     Dosage: UNK
  5. ASA [Concomitant]
     Dosage: UNK
  6. LANSOPRAZOLE [Concomitant]
     Dosage: UNK

REACTIONS (2)
  - Syncope [Recovering/Resolving]
  - Injury [Recovering/Resolving]
